FAERS Safety Report 4718761-0 (Version None)
Quarter: 2005Q3

REPORT INFORMATION
  Report Type: 
  Country: None (occurrence: None)
  Receive Date: 20050719
  Receipt Date: 20041109
  Transmission Date: 20060218
  Serious: Yes (Hospitalization)
  Sender: FDA-Public Use
  Company Number: 2004236730US

PATIENT
  Age: 75 Year
  Sex: Female

DRUGS (2)
  1. CELEBREX [Suspect]
     Indication: ARTHRITIS
     Dosage: (200 MG, UNKNOWN)
  2. ASPIRIN [Suspect]
     Indication: ILL-DEFINED DISORDER

REACTIONS (1)
  - GASTROINTESTINAL HAEMORRHAGE [None]
